FAERS Safety Report 21510260 (Version 1)
Quarter: 2022Q4

REPORT INFORMATION
  Report Type: Report from Study
  Country: US (occurrence: US)
  Receive Date: 20221026
  Receipt Date: 20221026
  Transmission Date: 20230113
  Serious: Yes (Other)
  Sender: FDA-Public Use
  Company Number: US-JAZZ-2022-US-026766

PATIENT
  Sex: Male

DRUGS (2)
  1. XYWAV [Suspect]
     Active Substance: CALCIUM OXYBATE\MAGNESIUM OXYBATE\POTASSIUM OXYBATE\SODIUM OXYBATE
     Indication: Hypersomnia
     Dosage: 2.25 GRAM, BID
     Dates: start: 20220810
  2. TPOXX [Concomitant]
     Active Substance: TECOVIRIMAT
     Indication: Product used for unknown indication
     Dosage: UNK
     Dates: start: 20220812

REACTIONS (5)
  - Monkeypox [Unknown]
  - Sleep paralysis [Unknown]
  - Hyperhidrosis [Unknown]
  - Nightmare [Unknown]
  - Intentional dose omission [Unknown]
